FAERS Safety Report 8287878-9 (Version None)
Quarter: 2012Q2

REPORT INFORMATION
  Report Type: 
  Country: None (occurrence: None)
  Receive Date: 20120416
  Receipt Date: 20120410
  Transmission Date: 20120825
  Serious: Yes (Other)
  Sender: FDA-Public Use
  Company Number: US-ABBOTT-12P-163-0923316-00

PATIENT

DRUGS (1)
  1. HUMIRA [Suspect]
     Indication: PRODUCT USED FOR UNKNOWN INDICATION

REACTIONS (11)
  - HEPATIC FAILURE [None]
  - MUSCLE SPASMS [None]
  - RESPIRATORY DISORDER [None]
  - DIAPHRAGMATIC DISORDER [None]
  - HEPATIC CIRRHOSIS [None]
  - LIVER INJURY [None]
  - HEPATITIS B [None]
  - MYALGIA [None]
  - NEUROMYOPATHY [None]
  - CROHN'S DISEASE [None]
  - MUSCLE CONTRACTIONS INVOLUNTARY [None]
